FAERS Safety Report 8158505-6 (Version None)
Quarter: 2012Q1

REPORT INFORMATION
  Report Type: 
  Country: None (occurrence: None)
  Receive Date: 20120223
  Receipt Date: 20120221
  Transmission Date: 20120608
  Serious: No
  Sender: FDA-Public Use
  Company Number: US-PFIZER INC-2012046221

PATIENT
  Sex: Male
  Weight: 116.55 kg

DRUGS (2)
  1. GEODON [Suspect]
     Indication: SCHIZOPHRENIA
     Dosage: 120 MG, 1X/DAY
     Route: 048
     Dates: start: 20090101, end: 20120221
  2. HALDOL [Concomitant]
     Indication: SCHIZOPHRENIA
     Dosage: UNK

REACTIONS (2)
  - DIZZINESS [None]
  - DYSKINESIA [None]
